FAERS Safety Report 7350740-X (Version None)
Quarter: 2011Q1

REPORT INFORMATION
  Report Type: 
  Country: None (occurrence: None)
  Receive Date: 20110314
  Receipt Date: 20110310
  Transmission Date: 20110831
  Serious: Yes (Death, Other)
  Sender: FDA-Public Use
  Company Number: JP-PFIZER INC-2011043398

PATIENT

DRUGS (1)
  1. LYRICA [Suspect]
     Indication: CANCER PAIN
     Dosage: 75 MG DAILY
     Route: 048
     Dates: start: 20110226, end: 20110227

REACTIONS (3)
  - MUSCULAR WEAKNESS [None]
  - DEATH [None]
  - ALCOHOL INTERACTION [None]
